FAERS Safety Report 6888249-X (Version None)
Quarter: 2010Q3

REPORT INFORMATION
  Report Type: 
  Country: None (occurrence: None)
  Receive Date: 20100730
  Receipt Date: 20100722
  Transmission Date: 20110219
  Serious: Yes (Hospitalization)
  Sender: FDA-Public Use
  Company Number: GXKR2010ES08157

PATIENT
  Age: 50 Year
  Sex: Female

DRUGS (2)
  1. IBUPROFEN (NGX) [Suspect]
     Indication: ACUTE SINUSITIS
     Dosage: UNK
     Route: 065
     Dates: start: 20050601
  2. AMOXICILLIN AND CLAVULANATE POTASSIUM [Concomitant]
     Indication: ACUTE SINUSITIS
     Dosage: UNK
     Route: 065
     Dates: start: 20050601

REACTIONS (9)
  - CHEST DISCOMFORT [None]
  - DYSPNOEA [None]
  - ELECTROCARDIOGRAM ST SEGMENT ELEVATION [None]
  - HAEMODYNAMIC INSTABILITY [None]
  - HYPERHIDROSIS [None]
  - HYPOTENSION [None]
  - KOUNIS SYNDROME [None]
  - PALPITATIONS [None]
  - VENTRICULAR TACHYCARDIA [None]
